FAERS Safety Report 8093853-X (Version None)
Quarter: 2012Q1

REPORT INFORMATION
  Report Type: 
  Country: None (occurrence: None)
  Receive Date: 20120129
  Receipt Date: 20110913
  Transmission Date: 20120608
  Serious: Yes (Other)
  Sender: FDA-Public Use
  Company Number: US-ABBOTT-11P-163-0854369-00

PATIENT
  Sex: Female
  Weight: 73.548 kg

DRUGS (9)
  1. WELLBUTRIN [Concomitant]
     Indication: PRODUCT USED FOR UNKNOWN INDICATION
  2. MEDICATION TO TREAT MALARIA [Concomitant]
     Indication: PSORIATIC ARTHROPATHY
  3. UNKNOWN SUPPLEMENTS [Concomitant]
     Indication: PRODUCT USED FOR UNKNOWN INDICATION
  4. LASIX [Concomitant]
     Indication: PRODUCT USED FOR UNKNOWN INDICATION
  5. HUMIRA [Suspect]
     Indication: PSORIATIC ARTHROPATHY
     Route: 058
     Dates: start: 20050101, end: 20101001
  6. NEXIUM [Concomitant]
     Indication: PRODUCT USED FOR UNKNOWN INDICATION
  7. METOPROLOL TARTRATE [Concomitant]
     Indication: PRODUCT USED FOR UNKNOWN INDICATION
  8. BLOOD PRESSURE MEDICATION [Concomitant]
     Indication: BLOOD PRESSURE
  9. CREON [Concomitant]
     Indication: PRODUCT USED FOR UNKNOWN INDICATION

REACTIONS (5)
  - HIP ARTHROPLASTY [None]
  - PANCREATIC CARCINOMA [None]
  - FOOT OPERATION [None]
  - KNEE ARTHROPLASTY [None]
  - FLANK PAIN [None]
